FAERS Safety Report 23855813 (Version 1)
Quarter: 2024Q2

REPORT INFORMATION
  Report Type: Report from Study
  Country: US (occurrence: US)
  Receive Date: 20240515
  Receipt Date: 20240515
  Transmission Date: 20240716
  Serious: Yes (Other)
  Sender: FDA-Public Use
  Company Number: US-ABBVIE-5757452

PATIENT
  Sex: Male

DRUGS (2)
  1. HUMIRA [Suspect]
     Active Substance: ADALIMUMAB
     Indication: Psoriatic arthropathy
     Route: 058
     Dates: start: 20210615
  2. HUMIRA [Suspect]
     Active Substance: ADALIMUMAB
     Dosage: RESUMED HUMIRA
     Route: 058

REACTIONS (2)
  - Chemotherapy [Recovering/Resolving]
  - Surgery [Recovering/Resolving]
